FAERS Safety Report 14851739 (Version 2)
Quarter: 2018Q3

REPORT INFORMATION
  Report Type: Report from Study
  Country: None (occurrence: US)
  Receive Date: 20180507
  Receipt Date: 20180801
  Transmission Date: 20181010
  Serious: Yes (Other)
  Sender: FDA-Public Use
  Company Number: US-ABBVIE-18K-163-2333594-00

PATIENT
  Age: 35 Year
  Sex: Male
  Weight: 95.79 kg

DRUGS (2)
  1. HUMIRA [Suspect]
     Active Substance: ADALIMUMAB
     Indication: CROHN^S DISEASE
     Route: 058
     Dates: start: 201709
  2. TYLENOL [Concomitant]
     Active Substance: ACETAMINOPHEN
     Indication: PAIN

REACTIONS (9)
  - Post procedural discharge [Not Recovered/Not Resolved]
  - Mass [Not Recovered/Not Resolved]
  - Procedural pain [Recovering/Resolving]
  - Frequent bowel movements [Not Recovered/Not Resolved]
  - Drug resistance [Not Recovered/Not Resolved]
  - Anorectal disorder [Recovering/Resolving]
  - Anal abscess [Recovering/Resolving]
  - Gastric infection [Not Recovered/Not Resolved]
  - Diarrhoea [Not Recovered/Not Resolved]

NARRATIVE: CASE EVENT DATE: 201803
